FAERS Safety Report 4882568-4 (Version None)
Quarter: 2006Q1

REPORT INFORMATION
  Report Type: 
  Country: None (occurrence: None)
  Receive Date: 20060113
  Receipt Date: 20060104
  Transmission Date: 20060701
  Serious: Yes (Hospitalization)
  Sender: FDA-Public Use
  Company Number: TPA2006A00018

PATIENT
  Age: 70 Year
  Sex: Female
  Weight: 64.4108 kg

DRUGS (10)
  1. ACTOS [Suspect]
     Indication: DIABETES MELLITUS NON-INSULIN-DEPENDENT
     Dosage: 30 MG, 1 IN 1 D, PER ORAL
     Route: 048
     Dates: start: 20020101, end: 20050901
  2. NEURONTIN [Concomitant]
  3. SYNTHROID [Concomitant]
  4. LORAZEPAM [Concomitant]
  5. CYMBALTA (ARICLAIM) [Concomitant]
  6. FUROSEMIDE [Concomitant]
  7. FENOFIBRATE [Concomitant]
  8. LORTAB [Concomitant]
  9. BISACODYL (BISACODYL) [Concomitant]
  10. VYTORIN (INEGY) (TABLETS) [Concomitant]

REACTIONS (6)
  - AMMONIA INCREASED [None]
  - GASTROINTESTINAL MOTILITY DISORDER [None]
  - HEPATIC CIRRHOSIS [None]
  - HYPERSOMNIA [None]
  - RENAL DISORDER [None]
  - RENAL FUNCTION TEST ABNORMAL [None]
